FAERS Safety Report 13225884 (Version 1)
Quarter: 2017Q1

REPORT INFORMATION
  Report Type: Report from Study
  Country: IT (occurrence: IT)
  Receive Date: 20170213
  Receipt Date: 20170213
  Transmission Date: 20170428
  Serious: Yes (Hospitalization)
  Sender: FDA-Public Use
  Company Number: IT-TEVA-728340ACC

PATIENT
  Age: 30 Year
  Sex: Female

DRUGS (6)
  1. DELORAZEPAM [Suspect]
     Active Substance: DELORAZEPAM
     Indication: PRODUCT USED FOR UNKNOWN INDICATION
     Route: 048
  2. DEPAKIN CHRONO [Suspect]
     Active Substance: VALPROIC ACID
     Dosage: 3 ML IN THE EVENING
  3. EFEXOR - 75 MG CAPSULE RIGIDE A RILASCIO PROLUNGATO [Suspect]
     Active Substance: VENLAFAXINE HYDROCHLORIDE
     Indication: PRODUCT USED FOR UNKNOWN INDICATION
     Route: 048
  4. DEPAKIN CHRONO [Suspect]
     Active Substance: VALPROIC ACID
     Indication: PRODUCT USED FOR UNKNOWN INDICATION
     Route: 048
  5. OLANZAPINE. [Suspect]
     Active Substance: OLANZAPINE
     Indication: PRODUCT USED FOR UNKNOWN INDICATION
     Dosage: 10 MG AT 09:00 P.M
     Route: 048
  6. EN [Suspect]
     Active Substance: DELORAZEPAM
     Indication: PRODUCT USED FOR UNKNOWN INDICATION
     Dosage: A HALF DOSAGE FORM AT 02:00 P.M. AND ONE DOSAGE FORM AT 10:00 P.M
     Route: 048

REACTIONS (5)
  - Dysarthria [Unknown]
  - Drug abuse [Unknown]
  - Self-injurious ideation [Unknown]
  - Intentional self-injury [None]
  - Sopor [Unknown]

NARRATIVE: CASE EVENT DATE: 20160815
